FAERS Safety Report 14739973 (Version 2)
Quarter: 2018Q2

REPORT INFORMATION
  Report Type: Report from Study
  Country: AT (occurrence: AT)
  Receive Date: 20180410
  Receipt Date: 20180515
  Transmission Date: 20180711
  Serious: Yes (Other)
  Sender: FDA-Public Use
  Company Number: AT-ACCORD-065556

PATIENT
  Age: 28 Year
  Sex: Male

DRUGS (3)
  1. APREDNISLON [Concomitant]
     Active Substance: PREDNISOLONE
     Indication: IMMUNOSUPPRESSION
     Dosage: 5 UNK, ONCE DAILY?DOSE 1 (UNIT UNKNOWN)
     Dates: start: 20140409
  2. MYFORTIC [Concomitant]
     Active Substance: MYCOPHENOLATE SODIUM
     Indication: IMMUNOSUPPRESSION
     Dosage: 720 UNK, ONCE DAILY?DOSE 1 (UNIT UNKNOWN)
     Dates: start: 20140409
  3. TACROLIMUS. [Suspect]
     Active Substance: TACROLIMUS
     Indication: RENAL TRANSPLANT
     Dates: start: 20150704

REACTIONS (1)
  - Chronic allograft nephropathy [Recovered/Resolved]

NARRATIVE: CASE EVENT DATE: 20150812
